FAERS Safety Report 21228382 (Version 1)
Quarter: 2022Q3

REPORT INFORMATION
  Report Type: Spontaneous
  Country: CA (occurrence: CA)
  Receive Date: 20220818
  Receipt Date: 20220818
  Transmission Date: 20221027
  Serious: Yes (Life-Threatening, Hospitalization, Other)
  Sender: FDA-Public Use
  Company Number: CA-INDIVIOR EUROPE LIMITED-INDV-135538-2022

PATIENT
  Age: 24 Year
  Sex: Female

DRUGS (5)
  1. BUPRENORPHINE\NALOXONE [Suspect]
     Active Substance: BUPRENORPHINE\NALOXONE
     Indication: Drug use disorder
     Dosage: UNK
     Route: 065
  2. BUPRENORPHINE\NALOXONE [Suspect]
     Active Substance: BUPRENORPHINE\NALOXONE
     Dosage: 32 MILLIGRAM
     Route: 065
  3. FENTANYL [Suspect]
     Active Substance: FENTANYL
     Indication: Product used for unknown indication
     Dosage: UNK ( ONE-QUARTER GRAM-SMOKED)
     Route: 045
  4. FENTANYL [Suspect]
     Active Substance: FENTANYL
     Dosage: UNK ( ONE-QUARTER GRAM)
     Route: 042
  5. NICOTINE [Concomitant]
     Active Substance: NICOTINE
     Indication: Product used for unknown indication
     Dosage: UNK
     Route: 065

REACTIONS (6)
  - Overdose [Recovered/Resolved]
  - Toxicity to various agents [Recovered/Resolved]
  - Endocarditis [Unknown]
  - Drug detoxification [Recovered/Resolved]
  - Prescribed overdose [Recovered/Resolved]
  - Drug abuse [Recovered/Resolved]
